FAERS Safety Report 22266166 (Version 1)
Quarter: 2023Q2

REPORT INFORMATION
  Report Type: Spontaneous
  Country: US (occurrence: US)
  Receive Date: 20230428
  Receipt Date: 20230428
  Transmission Date: 20230722
  Serious: No
  Sender: FDA-Public Use
  Company Number: US-TEVA-2023-US-2878563

PATIENT
  Sex: Female

DRUGS (2)
  1. BUPRENORPHINE [Suspect]
     Active Substance: BUPRENORPHINE
     Indication: Product used for unknown indication
     Dosage: 24 MILLIGRAM DAILY;
     Route: 060
  2. BUPRENORPHINE [Suspect]
     Active Substance: BUPRENORPHINE
     Dosage: 24 MILLIGRAM DAILY; SUBLINGUAL TABLET TAKEN VIA BUCCAL ROUTE
     Route: 002

REACTIONS (10)
  - Product contamination [Unknown]
  - Oral mucosal exfoliation [Unknown]
  - Mucosal excoriation [Unknown]
  - Reaction to excipient [Unknown]
  - Therapeutic product effect decreased [Unknown]
  - Off label use [Unknown]
  - Product solubility abnormal [Unknown]
  - Product taste abnormal [Unknown]
  - Salivary gland enlargement [Recovered/Resolved]
  - Salivary gland pain [Recovered/Resolved]
